FAERS Safety Report 9850870 (Version 1)
Quarter: 2014Q1

REPORT INFORMATION
  Report Type: Spontaneous
  Country: CL (occurrence: CL)
  Receive Date: 20140128
  Receipt Date: 20140128
  Transmission Date: 20141002
  Serious: Yes (Other)
  Sender: FDA-Public Use
  Company Number: CL-PFIZER INC-2014025540

PATIENT
  Age: 66 Year
  Sex: Female

DRUGS (4)
  1. LYRICA [Suspect]
     Indication: SPINAL PAIN
     Dosage: 75 MG, 2X/DAY
     Route: 048
     Dates: start: 2010
  2. ESOMEPRAZOLE [Concomitant]
     Dosage: UNK
     Dates: start: 2008
  3. CARDIOASPIRIN [Concomitant]
     Dosage: 0.5 DF, 1X/DAY
     Dates: start: 2009
  4. GLUCOSAMINE [Concomitant]
     Dosage: UNK
     Dates: start: 2011

REACTIONS (4)
  - Drug dependence [Not Recovered/Not Resolved]
  - Gastric ulcer [Recovered/Resolved]
  - Arthropathy [Unknown]
  - Toothache [Not Recovered/Not Resolved]
